FAERS Safety Report 5218017-6 (Version None)
Quarter: 2007Q1

REPORT INFORMATION
  Report Type: 
  Country: None (occurrence: None)
  Receive Date: 20061130
  Receipt Date: 20060807
  Transmission Date: 20070707
  Serious: Yes (Hospitalization)
  Sender: FDA-Public Use
  Company Number: US200607001336

PATIENT
  Sex: Male
  Weight: 95.2 kg

DRUGS (1)
  1. ZYPREXA [Suspect]
     Dates: start: 19980104, end: 20050801

REACTIONS (2)
  - CEREBROVASCULAR ACCIDENT [None]
  - DIABETES MELLITUS [None]
